FAERS Safety Report 5219121-9 (Version None)
Quarter: 2007Q1

REPORT INFORMATION
  Report Type: 
  Country: None (occurrence: None)
  Receive Date: 20061121
  Receipt Date: 20060911
  Transmission Date: 20070707
  Serious: No
  Sender: FDA-Public Use
  Company Number: TPA2006A01564

PATIENT
  Age: 5 Decade
  Sex: Female

DRUGS (2)
  1. ROZEREM [Suspect]
     Dosage: 8 MG, HS, PER ORAL
     Route: 048
     Dates: start: 20060908, end: 20060911
  2. UNKNOWN BLOOD PRESSURE MEDICATION (ALL OTHER THERAPEUTIC PRODUCTS) [Concomitant]

REACTIONS (3)
  - DRY MOUTH [None]
  - HEADACHE [None]
  - INSOMNIA [None]
